FAERS Safety Report 16156342 (Version 3)
Quarter: 2019Q2

REPORT INFORMATION
  Report Type: Report from Study
  Country: ES (occurrence: ES)
  Receive Date: 20190404
  Receipt Date: 20190502
  Transmission Date: 20190711
  Serious: Yes (Hospitalization, Other)
  Sender: FDA-Public Use
  Company Number: ES-SA-2019SA087942

PATIENT
  Age: 60 Year
  Sex: Female

DRUGS (5)
  1. INSULIN GLARGINE [Suspect]
     Active Substance: INSULIN GLARGINE
     Indication: TYPE 2 DIABETES MELLITUS
     Dosage: 32 IU
     Route: 058
  2. DULOXETINA [DULOXETINE] [Concomitant]
     Active Substance: DULOXETINE
     Dosage: UNK
     Route: 048
  3. MIRTAZAPINA [Concomitant]
     Active Substance: MIRTAZAPINE
     Dosage: UNK
     Route: 048
  4. ENALAPRIL [Concomitant]
     Active Substance: ENALAPRIL
     Dosage: UNK
     Route: 048
  5. INSULIN RAPID [Concomitant]
     Active Substance: INSULIN NOS
     Indication: TYPE 2 DIABETES MELLITUS
     Dosage: UNK
     Route: 058

REACTIONS (6)
  - Hypercholesterolaemia [Unknown]
  - Chronic obstructive pulmonary disease [Recovering/Resolving]
  - Hyperglycaemia [Recovering/Resolving]
  - Hypertriglyceridaemia [Unknown]
  - Blood glucose increased [Not Recovered/Not Resolved]
  - Asthma [Unknown]

NARRATIVE: CASE EVENT DATE: 20190325
